FAERS Safety Report 16136819 (Version 1)
Quarter: 2019Q2

REPORT INFORMATION
  Report Type: Other
  Country: GB (occurrence: GB)
  Receive Date: 20190401
  Receipt Date: 20190401
  Transmission Date: 20190711
  Serious: No
  Sender: FDA-Public Use
  Company Number: GB-LUPIN PHARMACEUTICALS INC.-2018-01984

PATIENT
  Age: 26 Year
  Sex: Female

DRUGS (1)
  1. SERTRALINE HYDROCHLORIDE. [Suspect]
     Active Substance: SERTRALINE HYDROCHLORIDE
     Indication: ANXIETY
     Dosage: 100 MG, UNK
     Route: 048

REACTIONS (2)
  - Condition aggravated [Recovered/Resolved]
  - Dermatitis atopic [Recovered/Resolved]
